FAERS Safety Report 19321651 (Version 1)
Quarter: 2021Q2

REPORT INFORMATION
  Report Type: Spontaneous
  Country: AU (occurrence: AU)
  Receive Date: 20210527
  Receipt Date: 20210527
  Transmission Date: 20210717
  Serious: Yes (Other)
  Sender: FDA-Public Use
  Company Number: AU-ALLERGAN-2120290US

PATIENT
  Sex: Female

DRUGS (1)
  1. BOTOX [Suspect]
     Active Substance: ONABOTULINUMTOXINA
     Indication: PRODUCT USED FOR UNKNOWN INDICATION
     Dosage: 30 UNITS, SINGLE
     Dates: start: 20210519, end: 20210519

REACTIONS (2)
  - Hypersensitivity [Unknown]
  - Angioedema [Not Recovered/Not Resolved]

NARRATIVE: CASE EVENT DATE: 20210519
